FAERS Safety Report 10032018 (Version 3)
Quarter: 2014Q2

REPORT INFORMATION
  Report Type: Spontaneous
  Country: JP (occurrence: JP)
  Receive Date: 20140324
  Receipt Date: 20140409
  Transmission Date: 20141212
  Serious: Yes (Death, Other)
  Sender: FDA-Public Use
  Company Number: JP-OTSUKA-JP-2013-11943

PATIENT
  Age: 65 Year
  Sex: Male

DRUGS (5)
  1. BUSULFEX [Suspect]
     Indication: ACUTE MYELOID LEUKAEMIA
     Dosage: 3.2 MG/KG, DAILY DOSE
     Route: 042
  2. BUSULFEX [Suspect]
     Indication: STEM CELL TRANSPLANT
  3. FLUDARABINE [Concomitant]
     Dosage: 30 MG/M2, DAILY DOSE
     Route: 065
  4. L-PAM [Concomitant]
     Dosage: 70 MG/M2, DAILY DOSE
     Route: 065
  5. ATG [Concomitant]
     Dosage: 2.5 MG/KG, DAILY DOSE
     Route: 065

REACTIONS (2)
  - Cerebral haemorrhage [Fatal]
  - Cytomegalovirus test positive [Unknown]
